FAERS Safety Report 9782944 (Version 3)
Quarter: 2013Q4

REPORT INFORMATION
  Report Type: Spontaneous
  Country: FR (occurrence: FR)
  Receive Date: 20131226
  Receipt Date: 20131228
  Transmission Date: 20140711
  Serious: Yes (Hospitalization)
  Sender: FDA-Public Use
  Company Number: FR-ALLERGAN-1319996US

PATIENT
  Age: 20 Year
  Sex: Female

DRUGS (1)
  1. BOTOX [Suspect]
     Indication: BLADDER DYSFUNCTION
     Dosage: UNK, SINGLE
     Route: 043
     Dates: start: 20131209, end: 20131209

REACTIONS (4)
  - Dehydration [Not Recovered/Not Resolved]
  - Abdominal pain [Not Recovered/Not Resolved]
  - Colitis [Not Recovered/Not Resolved]
  - Diarrhoea [Not Recovered/Not Resolved]
